FAERS Safety Report 22727568 (Version 3)
Quarter: 2024Q2

REPORT INFORMATION
  Report Type: Report from Study
  Country: MX (occurrence: MX)
  Receive Date: 20230720
  Receipt Date: 20240508
  Transmission Date: 20240716
  Serious: Yes (Other)
  Sender: FDA-Public Use
  Company Number: MX-002147023-NVSC2023MX159685

PATIENT
  Age: 46 Year
  Sex: Female
  Weight: 59.5 kg

DRUGS (6)
  1. ERENUMAB [Suspect]
     Active Substance: ERENUMAB
     Indication: Migraine
     Dosage: DOSE 1 OF 70MG, Q4W (EVERY 28 DAYS) AMPOULE
     Route: 058
     Dates: start: 20200523
  2. FLUNARIZINE [Concomitant]
     Active Substance: FLUNARIZINE
     Indication: Product used for unknown indication
     Dosage: UNK
     Route: 065
  3. ZOMIG [Concomitant]
     Active Substance: ZOLMITRIPTAN
     Indication: Pain
     Dosage: 2 DOSAGE FORM, AS PER NEED
     Route: 060
     Dates: end: 2020
  4. Alin [Concomitant]
     Indication: Pain
     Dosage: 1 DOSAGE FORM
     Route: 030
     Dates: end: 2020
  5. TOPAMAX [Concomitant]
     Active Substance: TOPIRAMATE
     Indication: Migraine
     Dosage: 1 DOSAGE FORM OF 50MG, QD(ONCE A DAY )
     Route: 048
     Dates: end: 2020
  6. AMITRIPTYLINE [Concomitant]
     Active Substance: AMITRIPTYLINE
     Indication: Product used for unknown indication
     Dosage: UNK
     Route: 065

REACTIONS (2)
  - Migraine [Recovering/Resolving]
  - Insomnia [Unknown]
